FAERS Safety Report 4772046-5 (Version None)
Quarter: 2005Q3

REPORT INFORMATION
  Report Type: 
  Country: None (occurrence: None)
  Receive Date: 20050916
  Receipt Date: 20050912
  Transmission Date: 20060218
  Serious: Yes (Other)
  Sender: FDA-Public Use
  Company Number: 2005AL003565

PATIENT
  Age: 52 Year
  Sex: Male

DRUGS (2)
  1. PHENYTOIN [Suspect]
     Indication: CONVULSION
     Dosage: 300 MG; QD;
  2. FOLIC ACID [Suspect]
     Indication: ANAEMIA MACROCYTIC
     Dosage: 5 MG; QD; PO
     Route: 048

REACTIONS (6)
  - ANAEMIA MACROCYTIC [None]
  - CONDITION AGGRAVATED [None]
  - CONVULSION [None]
  - DRUG LEVEL DECREASED [None]
  - GRAND MAL CONVULSION [None]
  - HIP FRACTURE [None]
